FAERS Safety Report 12857837 (Version 1)
Quarter: 2016Q4

REPORT INFORMATION
  Report Type: Spontaneous
  Country: US (occurrence: US)
  Receive Date: 20161018
  Receipt Date: 20161018
  Transmission Date: 20170207
  Serious: No
  Sender: FDA-Public Use
  Company Number: US-SA-2015SA164387

PATIENT
  Sex: Female

DRUGS (1)
  1. LEMTRADA [Suspect]
     Active Substance: ALEMTUZUMAB
     Route: 041

REACTIONS (7)
  - Pyrexia [Unknown]
  - Chills [Unknown]
  - Rash [Unknown]
  - Fatigue [Unknown]
  - Dysgeusia [Unknown]
  - Flushing [Unknown]
  - Herpes zoster [Unknown]
